FAERS Safety Report 4302472-X (Version None)
Quarter: 2004Q1

REPORT INFORMATION
  Report Type: 
  Country: None (occurrence: None)
  Receive Date: 20040220
  Receipt Date: 20040206
  Transmission Date: 20041129
  Serious: Yes (Hospitalization, Other)
  Sender: FDA-Public Use
  Company Number: HQWYE871109FEB04

PATIENT
  Age: 80 Year
  Sex: Female

DRUGS (3)
  1. BISOPROLOL FUMARATE [Suspect]
     Indication: HYPERTENSION
     Dosage: 5 MG 1X PER 1 DAY, ORAL
     Route: 048
     Dates: start: 20030101, end: 20031206
  2. ATACAND [Suspect]
     Indication: HYPERTENSION
     Dosage: 8 MG 1X PER 1 DAY, ORAL
     Route: 048
     Dates: start: 20030101, end: 20031206
  3. INDAPAMIDE [Suspect]
     Indication: HYPERTENSION
     Dosage: 1.5 MG 1X PER 1 DAY ORAL
     Route: 048
     Dates: start: 20030101, end: 20031206

REACTIONS (9)
  - ANOREXIA [None]
  - ASTHENIA [None]
  - BARTTER'S SYNDROME [None]
  - CONFUSIONAL STATE [None]
  - HYPOCHLORAEMIA [None]
  - HYPOKALAEMIA [None]
  - HYPONATRAEMIA [None]
  - METABOLIC DISORDER [None]
  - PARANEOPLASTIC SYNDROME [None]
